FAERS Safety Report 11553962 (Version 1)
Quarter: 2015Q3

REPORT INFORMATION
  Report Type: Other
  Country: US (occurrence: US)
  Receive Date: 20150925
  Receipt Date: 20150925
  Transmission Date: 20151125
  Serious: Yes (Death, Hospitalization, Other)
  Sender: FDA-Public Use
  Company Number: US-ENDO PHARMACEUTICALS INC-2015-002887

PATIENT
  Age: 42 Year
  Sex: Female

DRUGS (2)
  1. PROPYLTHIOURACIL TABLETS 50 MG [Suspect]
     Active Substance: PROPYLTHIOURACIL
     Indication: BASEDOW^S DISEASE
     Route: 065
  2. PROPRANOLOL [Concomitant]
     Active Substance: PROPRANOLOL\PROPRANOLOL HYDROCHLORIDE
     Indication: PRODUCT USED FOR UNKNOWN INDICATION
     Route: 065

REACTIONS (7)
  - Acute hepatic failure [Fatal]
  - Respiratory failure [Fatal]
  - Sepsis [Fatal]
  - Renal failure [Fatal]
  - Vasculitis cerebral [Unknown]
  - Pneumonia [Unknown]
  - Anti-neutrophil cytoplasmic antibody positive vasculitis [Fatal]
